FAERS Safety Report 17756110 (Version 1)
Quarter: 2020Q2

REPORT INFORMATION
  Report Type: Spontaneous
  Country: US (occurrence: US)
  Receive Date: 20200507
  Receipt Date: 20200507
  Transmission Date: 20200714
  Serious: No
  Sender: FDA-Public Use
  Company Number: US-ASTRAZENECA-2020SE53246

PATIENT
  Sex: Male

DRUGS (10)
  1. LEVOTHYROXINE. [Concomitant]
     Active Substance: LEVOTHYROXINE
     Dosage: 75.0UG UNKNOWN
  2. CRESTOR [Suspect]
     Active Substance: ROSUVASTATIN CALCIUM
     Dosage: 40.0MG UNKNOWN
     Route: 048
  3. ZETIA [Concomitant]
     Active Substance: EZETIMIBE
     Dosage: 10.0MG UNKNOWN
  4. CALCIUM [Concomitant]
     Active Substance: CALCIUM
  5. BRILINTA [Suspect]
     Active Substance: TICAGRELOR
     Indication: ANTICOAGULANT THERAPY
     Route: 048
     Dates: start: 20200313, end: 20200318
  6. VITAMIN C [Concomitant]
     Active Substance: ASCORBIC ACID
  7. GARLIC. [Concomitant]
     Active Substance: GARLIC
  8. VITAMIN D [Concomitant]
     Active Substance: VITAMIN D NOS
  9. BRILINTA [Suspect]
     Active Substance: TICAGRELOR
     Indication: STENT PLACEMENT
     Route: 048
     Dates: start: 20200313, end: 20200318
  10. COQ10 [Concomitant]
     Active Substance: UBIDECARENONE

REACTIONS (3)
  - Malaise [Unknown]
  - Mental impairment [Unknown]
  - Feeling abnormal [Unknown]
